FAERS Safety Report 4318955-2 (Version None)
Quarter: 2004Q1

REPORT INFORMATION
  Report Type: 
  Country: None (occurrence: None)
  Receive Date: 20040315
  Receipt Date: 20040225
  Transmission Date: 20041129
  Serious: Yes (Other)
  Sender: FDA-Public Use
  Company Number: 2004-DE-00915GD

PATIENT
  Age: 24 Year
  Sex: Female

DRUGS (2)
  1. VIRAMUNE [Suspect]
     Indication: HIV INFECTION
  2. DIDANOSINE (DIDANOSINE) [Suspect]
     Indication: HIV INFECTION

REACTIONS (1)
  - ASEPTIC NECROSIS BONE [None]
